FAERS Safety Report 6170305-5 (Version None)
Quarter: 2009Q2

REPORT INFORMATION
  Report Type: 
  Country: None (occurrence: None)
  Receive Date: 20090427
  Receipt Date: 20090427
  Transmission Date: 20091009
  Serious: Yes (Other)
  Sender: FDA-Public Use
  Company Number: None

PATIENT
  Age: 44 Year
  Sex: Female
  Weight: 52.1637 kg

DRUGS (1)
  1. LAMICTAL [Suspect]
     Indication: BIPOLAR DISORDER
     Dosage: 150 BID
     Dates: start: 20071112, end: 20090408

REACTIONS (5)
  - ANHEDONIA [None]
  - CONDITION AGGRAVATED [None]
  - DEPRESSION [None]
  - PERFORMANCE STATUS DECREASED [None]
  - PRODUCT SUBSTITUTION ISSUE [None]
